FAERS Safety Report 19486067 (Version 1)
Quarter: 2021Q3

REPORT INFORMATION
  Report Type: Report from Study
  Country: US (occurrence: US)
  Receive Date: 20210702
  Receipt Date: 20210702
  Transmission Date: 20211014
  Serious: Yes (Hospitalization)
  Sender: FDA-Public Use
  Company Number: US-SA-2021SA213145

PATIENT
  Age: 63 Year
  Sex: Female

DRUGS (2)
  1. TERIFLUNOMIDE. [Suspect]
     Active Substance: TERIFLUNOMIDE
     Indication: MULTIPLE SCLEROSIS
     Dosage: 14 MG, QD
     Route: 048
     Dates: start: 201905
  2. DILTIAZEM HYDROCHLORIDE. [Suspect]
     Active Substance: DILTIAZEM HYDROCHLORIDE
     Indication: SWELLING

REACTIONS (6)
  - Intervertebral disc degeneration [Unknown]
  - Spinal stenosis [Unknown]
  - Dizziness [Unknown]
  - Osteoarthritis [Unknown]
  - Insomnia [Unknown]
  - Anaemia postoperative [Unknown]

NARRATIVE: CASE EVENT DATE: 202002
